FAERS Safety Report 7634618 (Version 4)
Quarter: 2012Q4

REPORT INFORMATION
  Report Type: 
  Country: US (occurrence: US)
  Receive Date: 20101020
  Receipt Date: 20121108
  Transmission Date: 20130627
  Serious: Yes (Hospitalization)
  Sender: FDA-Public Use
  Company Number: US-ALEXION-A201001298

PATIENT
  Age: 59 Year
  Sex: Male

DRUGS (2)
  1. SOLIRIS 300MG [Suspect]
     Indication: PAROXYSMAL NOCTURNAL HAEMOGLOBINURIA
     Dosage: 900 mg, q2w
     Route: 042
     Dates: start: 2007
  2. ATRIXA [Concomitant]
     Indication: THROMBOSIS
     Dosage: 10 mg, qd
     Route: 058

REACTIONS (2)
  - Cellulitis staphylococcal [Recovered/Resolved]
  - Haemoglobin decreased [Not Recovered/Not Resolved]
